FAERS Safety Report 8314933-7 (Version None)
Quarter: 2012Q2

REPORT INFORMATION
  Report Type: 
  Country: None (occurrence: None)
  Receive Date: 20120426
  Receipt Date: 20120416
  Transmission Date: 20120825
  Serious: Yes (Hospitalization)
  Sender: FDA-Public Use
  Company Number: US-JNJFOC-20120408365

PATIENT
  Sex: Male
  Weight: 54.9 kg

DRUGS (6)
  1. PHYTONADIONE [Concomitant]
  2. ALLEGRA [Concomitant]
  3. CHOLECALCIFEROL [Concomitant]
  4. TYLENOL (CAPLET) [Concomitant]
  5. VITAMIN B COMPLEX CAP [Concomitant]
  6. INFLIXIMAB, RECOMBINANT [Suspect]
     Indication: INFLAMMATORY BOWEL DISEASE
     Route: 042
     Dates: start: 20100903

REACTIONS (1)
  - MANIA [None]
